FAERS Safety Report 25668141 (Version 1)
Quarter: 2025Q3

REPORT INFORMATION
  Report Type: Spontaneous
  Country: US (occurrence: US)
  Receive Date: 20250812
  Receipt Date: 20250812
  Transmission Date: 20251021
  Serious: No
  Sender: AUROBINDO
  Company Number: US-AUROBINDO-AUR-APL-2025-024403

PATIENT
  Age: 55 Year
  Sex: Male
  Weight: 102.06 kg

DRUGS (1)
  1. TESTOSTERONE CYPIONATE [Suspect]
     Active Substance: TESTOSTERONE CYPIONATE
     Indication: Product used for unknown indication
     Route: 030
     Dates: start: 202504

REACTIONS (1)
  - Recalled product administered [Unknown]
